FAERS Safety Report 8852864 (Version 2)
Quarter: 2013Q1

REPORT INFORMATION
  Report Type: Spontaneous
  Country: IE (occurrence: IE)
  Receive Date: 20121022
  Receipt Date: 20130114
  Transmission Date: 20140127
  Serious: Yes (Other)
  Sender: FDA-Public Use
  Company Number: PHFR2004IE07128

PATIENT
  Age: 61 Year
  Sex: Male

DRUGS (2)
  1. CLOZARIL [Suspect]
     Indication: SCHIZOPHRENIA
     Dosage: 300 MG,
     Route: 048
     Dates: start: 20040120, end: 20040228
  2. FLURAZEPAM [Concomitant]
     Indication: INSOMNIA
     Dosage: 16 G, UNK
     Route: 048
     Dates: start: 20040101

REACTIONS (6)
  - Fall [Unknown]
  - Gait disturbance [Unknown]
  - Orthostatic hypotension [Recovered/Resolved]
  - Confusional state [Recovered/Resolved]
  - Salivary hypersecretion [Recovered/Resolved]
  - Weight increased [Unknown]
